FAERS Safety Report 21017035 (Version 1)
Quarter: 2022Q2

REPORT INFORMATION
  Report Type: Report from Study
  Country: IT (occurrence: IT)
  Receive Date: 20220628
  Receipt Date: 20220628
  Transmission Date: 20220721
  Serious: Yes (Hospitalization)
  Sender: FDA-Public Use
  Company Number: IT-MYLANLABS-2022M1048788

PATIENT

DRUGS (10)
  1. OLANZAPINE [Interacting]
     Active Substance: OLANZAPINE
     Indication: Schizoaffective disorder
     Dosage: 30 MILLIGRAM, DEFINED DAILY DOSE: 10MG
     Route: 065
  2. OLANZAPINE [Interacting]
     Active Substance: OLANZAPINE
     Indication: Antipsychotic therapy
  3. LORAZEPAM [Interacting]
     Active Substance: LORAZEPAM
     Indication: Schizoaffective disorder
     Dosage: 12 MILLIGRAM
     Route: 065
  4. LORAZEPAM [Interacting]
     Active Substance: LORAZEPAM
     Indication: Symptomatic treatment
  5. LORAZEPAM [Interacting]
     Active Substance: LORAZEPAM
     Indication: Antipsychotic therapy
  6. HALOPERIDOL [Interacting]
     Active Substance: HALOPERIDOL
     Indication: Schizoaffective disorder
     Dosage: 12 MILLIGRAM
     Route: 065
  7. HALOPERIDOL [Interacting]
     Active Substance: HALOPERIDOL
     Indication: Antipsychotic therapy
  8. LITHIUM [Interacting]
     Active Substance: LITHIUM
     Indication: Schizoaffective disorder
     Dosage: 1050 MILLIGRAM
     Route: 065
  9. LITHIUM [Interacting]
     Active Substance: LITHIUM
     Indication: Antipsychotic therapy
  10. VALPROIC ACID [Concomitant]
     Active Substance: VALPROIC ACID
     Indication: Product used for unknown indication
     Dosage: 2000 MILLIGRAM
     Route: 065

REACTIONS (2)
  - Sedation [Unknown]
  - Drug interaction [Unknown]
